FAERS Safety Report 7342887-9 (Version None)
Quarter: 2011Q1

REPORT INFORMATION
  Report Type: 
  Country: None (occurrence: None)
  Receive Date: 20110310
  Receipt Date: 20110302
  Transmission Date: 20110831
  Serious: Yes (Hospitalization)
  Sender: FDA-Public Use
  Company Number: FR-TEVA-269754ISR

PATIENT
  Sex: Male

DRUGS (1)
  1. COPAXONE [Suspect]

REACTIONS (3)
  - LUNG DISORDER [None]
  - EAR INFECTION [None]
  - RESPIRATORY DISORDER [None]
